FAERS Safety Report 7465492-2 (Version None)
Quarter: 2011Q2

REPORT INFORMATION
  Report Type: 
  Country: None (occurrence: None)
  Receive Date: 20110428
  Receipt Date: 20110105
  Transmission Date: 20111010
  Serious: Yes (Death)
  Sender: FDA-Public Use
  Company Number: AUR-APL-2011-00192

PATIENT
  Age: 50 Year
  Sex: Female

DRUGS (3)
  1. LISINOPRIL [Suspect]
     Dosage: ORAL
     Route: 048
  2. ATENOLOL [Suspect]
     Dosage: ORAL
     Route: 048
  3. HYDROCHLOROTHIAZIDE [Suspect]
     Dosage: ORAL
     Route: 048

REACTIONS (2)
  - INCORRECT DOSE ADMINISTERED [None]
  - COMPLETED SUICIDE [None]
